FAERS Safety Report 8172798 (Version 6)
Quarter: 2014Q1

REPORT INFORMATION
  Report Type: Spontaneous
  Country: US (occurrence: US)
  Receive Date: 20111007
  Receipt Date: 20140122
  Transmission Date: 20141002
  Serious: Yes (Hospitalization)
  Sender: FDA-Public Use
  Company Number: US-GLAXOSMITHKLINE-B0753120A

PATIENT
  Age: 55 Year
  Sex: Male
  Weight: 106.4 kg

DRUGS (1)
  1. AVANDIA [Suspect]
     Indication: DIABETES MELLITUS
     Dosage: 4MG PER DAY
     Route: 048
     Dates: start: 2003, end: 200710

REACTIONS (4)
  - Myocardial infarction [Not Recovered/Not Resolved]
  - Ventricular tachycardia [Unknown]
  - Palpitations [Unknown]
  - Coronary artery disease [Unknown]
